FAERS Safety Report 15719316 (Version 3)
Quarter: 2019Q1

REPORT INFORMATION
  Report Type: Spontaneous
  Country: US (occurrence: US)
  Receive Date: 20181213
  Receipt Date: 20190305
  Transmission Date: 20190417
  Serious: Yes (Other)
  Sender: FDA-Public Use
  Company Number: US-COOPERSURGICAL, INC.-US-2018CPS033887

PATIENT

DRUGS (1)
  1. PARAGARD T 380A [Suspect]
     Active Substance: COPPER
     Indication: CONTRACEPTION
     Dosage: UNK
     Route: 015
     Dates: end: 20181120

REACTIONS (3)
  - Cervicitis [Recovered/Resolved]
  - Device expulsion [Recovered/Resolved]
  - Genital lesion [Recovered/Resolved]

NARRATIVE: CASE EVENT DATE: 20181120
